FAERS Safety Report 22164045 (Version 2)
Quarter: 2023Q2

REPORT INFORMATION
  Report Type: Spontaneous
  Country: US (occurrence: None)
  Receive Date: 20230402
  Receipt Date: 20230508
  Transmission Date: 20230721
  Serious: No
  Sender: FDA-Public Use
  Company Number: US-ROCHE-3322363

PATIENT
  Age: 45 Year
  Sex: Female
  Weight: 77.180 kg

DRUGS (8)
  1. XOLAIR [Suspect]
     Active Substance: OMALIZUMAB
     Indication: Chronic spontaneous urticaria
     Dosage: VIAL?EVERY 28-30 DAYS
     Route: 058
     Dates: start: 202212
  2. XOLAIR [Suspect]
     Active Substance: OMALIZUMAB
     Indication: Mast cell activation syndrome
  3. XYZAL [Concomitant]
     Active Substance: LEVOCETIRIZINE DIHYDROCHLORIDE
     Indication: Mast cell activation syndrome
  4. CROMOLYN [Concomitant]
     Active Substance: CROMOLYN
     Indication: Mast cell activation syndrome
  5. XOPENEX HFA [Concomitant]
     Active Substance: LEVALBUTEROL TARTRATE
     Indication: Mast cell activation syndrome
  6. METOPROLOL [Concomitant]
     Active Substance: METOPROLOL
     Indication: Autonomic nervous system imbalance
  7. THYROID [Concomitant]
     Active Substance: LEVOTHYROXINE\LIOTHYRONINE
  8. SINGULAIR [Concomitant]
     Active Substance: MONTELUKAST SODIUM
     Indication: Mast cell activation syndrome

REACTIONS (15)
  - Administration site reaction [Not Recovered/Not Resolved]
  - Lymphadenopathy [Recovering/Resolving]
  - Weight increased [Not Recovered/Not Resolved]
  - Influenza like illness [Recovered/Resolved]
  - Rash erythematous [Unknown]
  - Skin burning sensation [Unknown]
  - Malaise [Unknown]
  - Paraesthesia [Unknown]
  - Headache [Unknown]
  - Chest discomfort [Unknown]
  - Dizziness [Unknown]
  - Pain [Unknown]
  - Nausea [Unknown]
  - Off label use [Unknown]
  - Brain fog [Unknown]

NARRATIVE: CASE EVENT DATE: 20221201
